FAERS Safety Report 19768499 (Version 1)
Quarter: 2021Q3

REPORT INFORMATION
  Report Type: Spontaneous
  Country: DE (occurrence: DE)
  Receive Date: 20210831
  Receipt Date: 20210831
  Transmission Date: 20211014
  Serious: Yes (Other)
  Sender: FDA-Public Use
  Company Number: DE-MYLANLABS-2021M1056520

PATIENT
  Sex: Female

DRUGS (1)
  1. MIRTAZAPINE. [Suspect]
     Active Substance: MIRTAZAPINE
     Indication: PRODUCT USED FOR UNKNOWN INDICATION
     Dosage: TAKEN IN CLINIC UNDER SUPERVISION
     Dates: start: 201903

REACTIONS (4)
  - Altered state of consciousness [Unknown]
  - Derealisation [Unknown]
  - Feeling abnormal [Unknown]
  - Drug abuse [Unknown]
